FAERS Safety Report 7491898-1 (Version None)
Quarter: 2011Q2

REPORT INFORMATION
  Report Type: 
  Country: None (occurrence: None)
  Receive Date: 20110511
  Receipt Date: 20110428
  Transmission Date: 20111010
  Serious: Yes (Death)
  Sender: FDA-Public Use
  Company Number: DSA_45536_2011

PATIENT
  Sex: Male

DRUGS (5)
  1. ZOLPIDEM [Suspect]
     Indication: INSOMNIA
     Dosage: (12.5 MG AT BEDTIME ORAL)
     Route: 048
  2. CELEXA [Suspect]
     Indication: INSOMNIA
     Dosage: (DF ORAL)
     Route: 048
  3. TRAZODONE HCL [Suspect]
     Indication: INSOMNIA
     Dosage: (DF ORAL)
     Route: 048
  4. ZOLPIDEM [Suspect]
     Indication: INSOMNIA
     Dosage: (10 MG QD ORAL)
     Route: 048
  5. WELLBUTRIN [Suspect]
     Indication: INSOMNIA
     Dosage: (DF ORAL)
     Route: 048

REACTIONS (5)
  - COMPLETED SUICIDE [None]
  - EMOTIONAL DISORDER [None]
  - INCORRECT DOSE ADMINISTERED [None]
  - DRUG INEFFECTIVE [None]
  - DROWNING [None]
